FAERS Safety Report 17057849 (Version 1)
Quarter: 2019Q4

REPORT INFORMATION
  Report Type: Spontaneous
  Country: US (occurrence: US)
  Receive Date: 20191022
  Receipt Date: 20191022
  Transmission Date: 20200122
  Serious: Yes (Death, Hospitalization)
  Sender: FDA-Public Use
  Company Number: None

PATIENT
  Age: 83 Year
  Sex: Male

DRUGS (1)
  1. CEFEPIME [Suspect]
     Active Substance: CEFEPIME HYDROCHLORIDE
     Indication: OSTEOMYELITIS
     Route: 042
     Dates: start: 20190731, end: 20190805

REACTIONS (6)
  - Neurotoxicity [None]
  - Pneumonia aspiration [None]
  - Uraemic encephalopathy [None]
  - Myoclonus [None]
  - Pulmonary oedema [None]
  - Acute kidney injury [None]

NARRATIVE: CASE EVENT DATE: 20190805
